FAERS Safety Report 18650332 (Version 1)
Quarter: 2020Q4

REPORT INFORMATION
  Report Type: Spontaneous
  Country: JP (occurrence: JP)
  Receive Date: 20201222
  Receipt Date: 20201222
  Transmission Date: 20210114
  Serious: Yes (Hospitalization)
  Sender: FDA-Public Use
  Company Number: JP-FERRINGPH-2020FE09125

PATIENT
  Age: 8 Decade
  Sex: Male

DRUGS (1)
  1. GONAX [Suspect]
     Active Substance: DEGARELIX
     Indication: PROSTATE CANCER
     Dosage: EVERY 4 WEEKS
     Route: 058

REACTIONS (3)
  - Rib fracture [Unknown]
  - Upper limb fracture [Unknown]
  - Fall [Unknown]
